FAERS Safety Report 19380847 (Version 1)
Quarter: 2021Q2

REPORT INFORMATION
  Report Type: Spontaneous
  Country: US (occurrence: US)
  Receive Date: 20210604
  Receipt Date: 20210604
  Transmission Date: 20210717
  Serious: Yes (Hospitalization)
  Sender: FDA-Public Use
  Company Number: None

PATIENT
  Age: 35 Year
  Sex: Female
  Weight: 76.5 kg

DRUGS (2)
  1. CLOZAPINE. [Suspect]
     Active Substance: CLOZAPINE
     Indication: AFFECTIVE DISORDER
     Route: 048
     Dates: start: 20210501, end: 20210504
  2. CLOZAPINE. [Suspect]
     Active Substance: CLOZAPINE
     Indication: AFFECTIVE DISORDER
     Route: 048
     Dates: start: 20210501, end: 20210504

REACTIONS (11)
  - Hyperhidrosis [None]
  - Catatonia [None]
  - Confusional state [None]
  - Hypertension [None]
  - Immobile [None]
  - Mutism [None]
  - Muscle rigidity [None]
  - Drooling [None]
  - Hypophagia [None]
  - Mydriasis [None]
  - Tachycardia [None]

NARRATIVE: CASE EVENT DATE: 20210504
